FAERS Safety Report 14876013 (Version 1)
Quarter: 2018Q2

REPORT INFORMATION
  Report Type: Spontaneous
  Country: IT (occurrence: IT)
  Receive Date: 20180510
  Receipt Date: 20180510
  Transmission Date: 20180711
  Serious: Yes (Hospitalization)
  Sender: FDA-Public Use
  Company Number: IT-SA-2018SA123297

PATIENT
  Age: 78 Year
  Sex: Male

DRUGS (3)
  1. PANTOPRAZOLE [Concomitant]
     Active Substance: PANTOPRAZOLE
  2. PLAVIX [Suspect]
     Active Substance: CLOPIDOGREL BISULFATE
     Route: 048
  3. ACETYLSALICYLIC ACID [Interacting]
     Active Substance: ASPIRIN
     Route: 048

REACTIONS (4)
  - Drug interaction [Unknown]
  - Gait disturbance [Not Recovered/Not Resolved]
  - Asthenia [Not Recovered/Not Resolved]
  - Thalamus haemorrhage [Not Recovered/Not Resolved]

NARRATIVE: CASE EVENT DATE: 20170913
